FAERS Safety Report 21823840 (Version 1)
Quarter: 2023Q1

REPORT INFORMATION
  Report Type: Spontaneous
  Country: US (occurrence: US)
  Receive Date: 20230105
  Receipt Date: 20230105
  Transmission Date: 20230418
  Serious: No
  Sender: FDA-Public Use
  Company Number: US-JNJFOC-20230102565

PATIENT
  Sex: Male
  Weight: 78.542 kg

DRUGS (1)
  1. REMICADE [Suspect]
     Active Substance: INFLIXIMAB
     Indication: Product used for unknown indication
     Route: 041

REACTIONS (5)
  - Serum sickness [Unknown]
  - Headache [Unknown]
  - Influenza like illness [Unknown]
  - Photophobia [Unknown]
  - Nausea [Unknown]
